FAERS Safety Report 16036827 (Version 9)
Quarter: 2020Q3

REPORT INFORMATION
  Report Type: Report from Study
  Country: BE (occurrence: BE)
  Receive Date: 20190305
  Receipt Date: 20200928
  Transmission Date: 20201102
  Serious: Yes (Life-Threatening, Hospitalization)
  Sender: FDA-Public Use
  Company Number: BE-ROCHE-2223612

PATIENT
  Age: 65 Year
  Sex: Male
  Weight: 70.3 kg

DRUGS (47)
  1. TOCILIZUMAB. [Suspect]
     Active Substance: TOCILIZUMAB
     Route: 065
     Dates: start: 20190330, end: 20190330
  2. ATROVENT [Concomitant]
     Active Substance: IPRATROPIUM BROMIDE
     Dosage: 1 AMPOULE
     Dates: start: 20181128
  3. FLUCONAZOLE. [Concomitant]
     Active Substance: FLUCONAZOLE
     Dates: start: 20181123, end: 20181129
  4. ALLOPURINOL. [Concomitant]
     Active Substance: ALLOPURINOL
     Dates: start: 20181214, end: 20190117
  5. CLEXANE [Concomitant]
     Active Substance: ENOXAPARIN SODIUM
     Dates: start: 20181204, end: 20181205
  6. CLEXANE [Concomitant]
     Active Substance: ENOXAPARIN SODIUM
     Dates: start: 20181129, end: 20181201
  7. UREUM [Concomitant]
     Dates: start: 20181123, end: 20181205
  8. DENTIO [Concomitant]
     Dates: start: 20190306, end: 20190311
  9. LASIX [Concomitant]
     Active Substance: FUROSEMIDE
     Dates: start: 20181213
  10. ALLOPURINOL. [Concomitant]
     Active Substance: ALLOPURINOL
     Dates: start: 20181122, end: 20190117
  11. CLEXANE [Concomitant]
     Active Substance: ENOXAPARIN SODIUM
     Dates: start: 20181228, end: 20190401
  12. LITICAN [Concomitant]
     Active Substance: ALIZAPRIDE HYDROCHLORIDE
     Dates: start: 20181123, end: 20181204
  13. ACICLOVIR [Concomitant]
     Active Substance: ACYCLOVIR
     Dates: start: 20181205, end: 20181205
  14. DENTIO [Concomitant]
     Dates: start: 20190216, end: 20190219
  15. TRADONAL [Concomitant]
     Active Substance: TRAMADOL HYDROCHLORIDE
     Dates: start: 20190331, end: 20190420
  16. ALLOPURINOL. [Concomitant]
     Active Substance: ALLOPURINOL
     Dates: start: 20181204, end: 20181205
  17. CLEXANE [Concomitant]
     Active Substance: ENOXAPARIN SODIUM
     Dates: start: 20190509, end: 20190513
  18. ACICLOVIR [Concomitant]
     Active Substance: ACYCLOVIR
     Dates: start: 20181207
  19. FLUCONAZOLE. [Concomitant]
     Active Substance: FLUCONAZOLE
     Dates: start: 20181209
  20. FASTURTEC [Concomitant]
     Active Substance: RASBURICASE
     Dates: start: 20181205, end: 20181205
  21. FASTURTEC [Concomitant]
     Active Substance: RASBURICASE
     Dates: start: 20181206, end: 20181209
  22. BACTRIM [Concomitant]
     Active Substance: SULFAMETHOXAZOLE\TRIMETHOPRIM
     Dosage: 800/160 MG
     Dates: start: 20181123, end: 20181127
  23. BACTRIM [Concomitant]
     Active Substance: SULFAMETHOXAZOLE\TRIMETHOPRIM
     Dosage: 800/160 MG?2X/WEEK
     Dates: start: 20181211
  24. DENTIO [Concomitant]
     Dates: start: 20190118
  25. LASIX [Concomitant]
     Active Substance: FUROSEMIDE
     Dates: start: 20190118
  26. TRADONAL RETARD [Concomitant]
     Active Substance: TRAMADOL HYDROCHLORIDE
     Dates: start: 20190331
  27. TOCILIZUMAB. [Suspect]
     Active Substance: TOCILIZUMAB
     Indication: CYTOKINE RELEASE SYNDROME
     Route: 065
     Dates: start: 20181205, end: 20181206
  28. ALLOPURINOL. [Concomitant]
     Active Substance: ALLOPURINOL
     Dates: start: 20181124, end: 20181128
  29. CLEXANE [Concomitant]
     Active Substance: ENOXAPARIN SODIUM
     Dates: start: 20181124, end: 20181127
  30. ACICLOVIR [Concomitant]
     Active Substance: ACYCLOVIR
     Dates: start: 20181123, end: 20181129
  31. FASTURTEC [Concomitant]
     Active Substance: RASBURICASE
     Dates: start: 20190118, end: 20190121
  32. DENTIO [Concomitant]
     Dosage: 2X/DAY
     Dates: start: 20190117, end: 20190121
  33. RO7082859 (CD20/C3 T?CELL BISPECIFIC MAB) [Suspect]
     Active Substance: GLOFITAMAB
     Indication: NON-HODGKIN^S LYMPHOMA
     Dosage: LAST DOSE PRIOR TO SAE ON 05/DEC/2018?LAST DOSE PRIOR TO SECOND EPISODE OF CYTOKINE RELEASE SYNDROME
     Route: 042
     Dates: start: 20181205
  34. CLEXANE [Concomitant]
     Active Substance: ENOXAPARIN SODIUM
     Dates: start: 20190417, end: 20190424
  35. LITICAN [Concomitant]
     Active Substance: ALIZAPRIDE HYDROCHLORIDE
     Dates: start: 20181123, end: 20181204
  36. TRADONAL [Concomitant]
     Active Substance: TRAMADOL HYDROCHLORIDE
     Dates: start: 20190328, end: 20190330
  37. OBINUTUZUMAB. [Suspect]
     Active Substance: OBINUTUZUMAB
     Indication: NON-HODGKIN^S LYMPHOMA
     Dosage: PRE?TREATMENT, EVERY 3 WEEKS AS PER PROTOCOL
     Route: 042
     Dates: start: 20181128
  38. ALLOPURINOL. [Concomitant]
     Active Substance: ALLOPURINOL
     Dates: start: 20190121
  39. CLEXANE [Concomitant]
     Active Substance: ENOXAPARIN SODIUM
     Dates: start: 20181202, end: 20181202
  40. FASTURTEC [Concomitant]
     Active Substance: RASBURICASE
     Dates: start: 20181129, end: 20181202
  41. FRAXODI [Concomitant]
     Active Substance: NADROPARIN CALCIUM
     Dates: start: 20190401
  42. CLEXANE [Concomitant]
     Active Substance: ENOXAPARIN SODIUM
     Dates: start: 20181122
  43. CLEXANE [Concomitant]
     Active Substance: ENOXAPARIN SODIUM
     Dates: start: 20181128, end: 20181128
  44. UREUM [Concomitant]
     Dates: start: 20181123, end: 20181205
  45. FLUCONAZOLE. [Concomitant]
     Active Substance: FLUCONAZOLE
     Dates: start: 20181205, end: 20181205
  46. TRADONAL RETARD [Concomitant]
     Active Substance: TRAMADOL HYDROCHLORIDE
     Dates: start: 20181123, end: 20181203
  47. TRADONAL [Concomitant]
     Active Substance: TRAMADOL HYDROCHLORIDE
     Dates: start: 20181123, end: 20181203

REACTIONS (3)
  - Cytokine release syndrome [Recovered/Resolved]
  - Infusion related reaction [Recovered/Resolved]
  - Cytokine release syndrome [Recovered/Resolved]

NARRATIVE: CASE EVENT DATE: 20181128
